FAERS Safety Report 17889769 (Version 5)
Quarter: 2021Q4

REPORT INFORMATION
  Report Type: Report from Study
  Country: GB (occurrence: GB)
  Receive Date: 20200612
  Receipt Date: 20211213
  Transmission Date: 20220303
  Serious: Yes (Other)
  Sender: FDA-Public Use
  Company Number: NVSC2020GB163958

PATIENT
  Sex: Male

DRUGS (2)
  1. COSENTYX [Suspect]
     Active Substance: SECUKINUMAB
     Indication: Psoriatic arthropathy
     Dosage: 150 MG, QMO (150MG PEN EVERY 30 DAYS)
     Route: 058
     Dates: start: 20190208
  2. COSENTYX [Suspect]
     Active Substance: SECUKINUMAB
     Indication: Ankylosing spondylitis

REACTIONS (9)
  - COVID-19 [Not Recovered/Not Resolved]
  - Needle issue [Unknown]
  - Lung disorder [Unknown]
  - Device malfunction [Unknown]
  - Injury associated with device [Unknown]
  - Incorrect dose administered [Unknown]
  - Accidental exposure to product [Unknown]
  - Product storage error [Unknown]
  - Wrong technique in device usage process [Unknown]
